FAERS Safety Report 19470436 (Version 1)
Quarter: 2021Q2

REPORT INFORMATION
  Report Type: Report from Study
  Country: US (occurrence: US)
  Receive Date: 20210628
  Receipt Date: 20210628
  Transmission Date: 20210717
  Serious: Yes (Hospitalization, Other)
  Sender: FDA-Public Use
  Company Number: US-BRISTOL-MYERS SQUIBB COMPANY-BMS-2021-058768

PATIENT
  Age: 52 Year
  Sex: Female
  Weight: 72.5 kg

DRUGS (4)
  1. IPILIMUMAB [Suspect]
     Active Substance: IPILIMUMAB
     Indication: ACUTE MYELOID LEUKAEMIA
     Dosage: 10 MILLIGRAM/KILOGRAM
     Route: 042
  2. IPILIMUMAB [Suspect]
     Active Substance: IPILIMUMAB
     Dosage: 689 MILLIGRAM
     Route: 042
     Dates: start: 20210505, end: 20210505
  3. DECITABINE. [Suspect]
     Active Substance: DECITABINE
     Indication: ACUTE MYELOID LEUKAEMIA
     Dosage: 20 MILLIGRAM/SQ. METER
     Route: 042
     Dates: start: 20201117
  4. DECITABINE. [Suspect]
     Active Substance: DECITABINE
     Dosage: 170 MILLIGRAM
     Route: 042
     Dates: start: 20210505, end: 20210509

REACTIONS (2)
  - Febrile neutropenia [Unknown]
  - Diarrhoea [Not Recovered/Not Resolved]

NARRATIVE: CASE EVENT DATE: 202105
